FAERS Safety Report 6012746-2 (Version None)
Quarter: 2008Q4

REPORT INFORMATION
  Report Type: 
  Country: None (occurrence: None)
  Receive Date: 20081217
  Receipt Date: 20081203
  Transmission Date: 20090506
  Serious: Yes (Death)
  Sender: FDA-Public Use
  Company Number: 2008S1000442

PATIENT
  Sex: Female
  Weight: 116.7 kg

DRUGS (9)
  1. CUBICIN [Suspect]
     Indication: CATHETER BACTERAEMIA
     Dosage: 6 MG/KG;Q48H;IV
     Route: 042
  2. AMIODARONE HCL [Concomitant]
  3. AMLODIPINE [Concomitant]
  4. UNSPECIFIED ANTICOAGULANT [Concomitant]
  5. .. [Concomitant]
  6. FAMOTIDINE [Concomitant]
  7. FUROSEMIDE [Concomitant]
  8. INSULIN GLARGINE [Concomitant]
  9. VANCOMYCIN [Concomitant]

REACTIONS (1)
  - SEPSIS [None]
